FAERS Safety Report 21192610 (Version 1)
Quarter: 2022Q3

REPORT INFORMATION
  Report Type: Other
  Country: None (occurrence: IE)
  Receive Date: 20220809
  Receipt Date: 20220809
  Transmission Date: 20221027
  Serious: Yes (Hospitalization)
  Sender: FDA-Public Use
  Company Number: IE-OrBion Pharmaceuticals Private Limited-2131671

PATIENT
  Age: 82 Year
  Sex: Female

DRUGS (2)
  1. CEPHALEXIN [Suspect]
     Active Substance: CEPHALEXIN
     Indication: Urinary tract infection
     Route: 065
  2. CEPHALEXIN [Suspect]
     Active Substance: CEPHALEXIN
     Indication: Lower respiratory tract infection

REACTIONS (2)
  - Encephalopathy [Recovered/Resolved]
  - Electroencephalogram abnormal [Recovered/Resolved]
